FAERS Safety Report 13231462 (Version 1)
Quarter: 2017Q1

REPORT INFORMATION
  Report Type: Spontaneous
  Country: US (occurrence: US)
  Receive Date: 20170214
  Receipt Date: 20170214
  Transmission Date: 20170428
  Serious: No
  Sender: FDA-Public Use
  Company Number: US-TEVA-728201ACC

PATIENT
  Sex: Female

DRUGS (8)
  1. HYDROCODONE W/ACETAMINOPHEN [Concomitant]
     Active Substance: ACETAMINOPHEN\HYDROCODONE BITARTRATE
     Dosage: HYDROCODONR 10MG - ACETAMINOPHEN 300MG; 1 TABLET EVERY 6 HOURS
     Route: 048
     Dates: start: 20161025
  2. VITAMIN B12 [Concomitant]
     Active Substance: CYANOCOBALAMIN
     Dates: start: 20161025
  3. AROMASIN [Concomitant]
     Active Substance: EXEMESTANE
     Dosage: 1 TABLET EVERY DAY
     Route: 048
     Dates: start: 20161025
  4. LASIX [Concomitant]
     Active Substance: FUROSEMIDE
     Dosage: TAKE 1 TABLET EVERY 6 HOURS
     Route: 048
     Dates: start: 20161025
  5. LOSARTAN. [Concomitant]
     Active Substance: LOSARTAN
     Dosage: TAKE HALF TABLET BY MOUTH EVERY DAY
     Route: 048
     Dates: start: 20161025
  6. MUCINEX [Concomitant]
     Active Substance: GUAIFENESIN
     Dates: start: 20161025
  7. ANASTROZOLE. [Suspect]
     Active Substance: ANASTROZOLE
     Dates: start: 201602, end: 20160731
  8. ARTHRITIS [Concomitant]
     Active Substance: TROLAMINE SALICYLATE
     Dates: start: 20161024

REACTIONS (7)
  - Mood swings [Not Recovered/Not Resolved]
  - Memory impairment [Unknown]
  - Hot flush [Unknown]
  - Depression [Unknown]
  - Arthralgia [Not Recovered/Not Resolved]
  - Weight increased [Not Recovered/Not Resolved]
  - Drug intolerance [Unknown]

NARRATIVE: CASE EVENT DATE: 2016
